FAERS Safety Report 14465732 (Version 2)
Quarter: 2020Q3

REPORT INFORMATION
  Report Type: Report from Study
  Country: IT (occurrence: IT)
  Receive Date: 20180131
  Receipt Date: 20180516
  Transmission Date: 20201104
  Serious: Yes (Other)
  Sender: FDA-Public Use
  Company Number: IT-ROCHE-2016915

PATIENT
  Age: 39 Year
  Sex: Female
  Weight: 74 kg

DRUGS (3)
  1. ALECTINIB. [Suspect]
     Active Substance: ALECTINIB
     Dosage: THERAPY RESTARTED
     Route: 048
  2. ALECTINIB. [Suspect]
     Active Substance: ALECTINIB
     Indication: NON-SMALL CELL LUNG CANCER
     Route: 048
     Dates: start: 20170808, end: 20170821
  3. ALECTINIB. [Suspect]
     Active Substance: ALECTINIB
     Dosage: THERAPY INTERRUPTED FOR 14 DAYS
     Route: 048
     Dates: start: 20170822

REACTIONS (4)
  - Oedema peripheral [Recovering/Resolving]
  - Neutropenia [Not Recovered/Not Resolved]
  - Fatigue [Recovered/Resolved]
  - Disease progression [Unknown]

NARRATIVE: CASE EVENT DATE: 20170821
